FAERS Safety Report 18764951 (Version 1)
Quarter: 2021Q1

REPORT INFORMATION
  Report Type: Spontaneous
  Country: US (occurrence: US)
  Receive Date: 20210120
  Receipt Date: 20210120
  Transmission Date: 20210419
  Serious: Yes (Other)
  Sender: FDA-Public Use
  Company Number: US-TEVA-2021-US-1870866

PATIENT
  Age: 79 Year
  Sex: Female

DRUGS (4)
  1. TRAZODONE [Concomitant]
     Active Substance: TRAZODONE HYDROCHLORIDE
     Indication: SLEEP DISORDER
     Dosage: 50 MG PRN
     Route: 065
  2. ROBAXIN 750 MG [Concomitant]
     Indication: MUSCLE RELAXANT THERAPY
     Dosage: 750 MG BID
     Route: 065
  3. BACLOFEN. [Suspect]
     Active Substance: BACLOFEN
     Route: 065
  4. TRAMADOL 50 MG [Concomitant]
     Active Substance: TRAMADOL
     Indication: PAIN
     Dosage: 50 MG PRN
     Route: 065

REACTIONS (1)
  - Hallucination [Unknown]
